FAERS Safety Report 25149281 (Version 2)
Quarter: 2025Q2

REPORT INFORMATION
  Report Type: Spontaneous
  Country: US (occurrence: US)
  Receive Date: 20250402
  Receipt Date: 20250411
  Transmission Date: 20250716
  Serious: No
  Sender: MACLEODS
  Company Number: US-MACLEODS PHARMA-MAC2025052310

PATIENT

DRUGS (12)
  1. OLANZAPINE [Suspect]
     Active Substance: OLANZAPINE
     Indication: Product used for unknown indication
     Dosage: 2.5 MG TABLET, 1 AT BEDTIME, NDC: 33342-067-07
     Route: 065
  2. FUROSEMIDE [Concomitant]
     Active Substance: FUROSEMIDE
     Indication: Fluid retention
     Route: 065
  3. POTASSIUM [Concomitant]
     Active Substance: POTASSIUM
     Route: 065
  4. AMLODIPINE BESYLATE [Concomitant]
     Active Substance: AMLODIPINE BESYLATE
     Indication: Blood pressure measurement
     Dosage: 1 TABLET PER DAY
     Route: 065
  5. VITAMINS [Concomitant]
     Active Substance: VITAMINS
     Indication: Product used for unknown indication
     Route: 065
  6. Vitamin D 1000 unit [Concomitant]
     Indication: Product used for unknown indication
     Route: 065
  7. CARVEDILOL [Concomitant]
     Active Substance: CARVEDILOL
     Dosage: TWICE A DAY
     Route: 065
  8. CARVEDILOL [Concomitant]
     Active Substance: CARVEDILOL
  9. LISINOPRIL [Concomitant]
     Active Substance: LISINOPRIL
     Route: 065
  10. ASPIRIN [Concomitant]
     Active Substance: ASPIRIN
     Dosage: 1 PER DAY (LOW DOSE)
     Route: 065
  11. MAGNESIUM [Concomitant]
     Active Substance: MAGNESIUM
     Route: 065
  12. PROBIOTICS NOS [Concomitant]
     Active Substance: PROBIOTICS NOS
     Indication: Product used for unknown indication
     Route: 065

REACTIONS (14)
  - Confusional state [Recovered/Resolved]
  - Frequent bowel movements [Recovered/Resolved]
  - Abnormal behaviour [Recovered/Resolved]
  - Respiration abnormal [Recovered/Resolved]
  - Heart rate irregular [Recovered/Resolved]
  - Blood pressure fluctuation [Recovered/Resolved]
  - Faeces hard [Recovered/Resolved]
  - Heart rate increased [Recovered/Resolved]
  - Dysphagia [Recovered/Resolved]
  - Dry mouth [Recovered/Resolved]
  - Increased appetite [Recovered/Resolved]
  - Tremor [Recovered/Resolved]
  - Restlessness [Recovered/Resolved]
  - Blood cholesterol increased [Recovered/Resolved]
